FAERS Safety Report 10173038 (Version 1)
Quarter: 2014Q2

REPORT INFORMATION
  Report Type: Spontaneous
  Country: US (occurrence: None)
  Receive Date: 20140514
  Receipt Date: 20140514
  Transmission Date: 20141212
  Serious: Yes (Disabling)
  Sender: FDA-Public Use
  Company Number: None

PATIENT
  Age: 84 Year
  Sex: Female

DRUGS (1)
  1. STIVARGA 40MG BAYER [Suspect]
     Indication: NEOPLASM MALIGNANT
     Dosage: DAILY. 3WK ON / 1OFF
     Route: 048
     Dates: start: 20140422

REACTIONS (2)
  - Mucosal inflammation [None]
  - Activities of daily living impaired [None]
